FAERS Safety Report 8231492-8 (Version None)
Quarter: 2012Q1

REPORT INFORMATION
  Report Type: 
  Country: None (occurrence: None)
  Receive Date: 20120323
  Receipt Date: 20120314
  Transmission Date: 20120608
  Serious: Yes (Other)
  Sender: FDA-Public Use
  Company Number: PHHY2012CA001486

PATIENT
  Age: 44 Year
  Sex: Female

DRUGS (8)
  1. ZIPRASIDONE HYDROCHLORIDE [Suspect]
     Dosage: 60 MG, BID
     Dates: start: 20111021, end: 20111022
  2. SYNTHROID [Concomitant]
  3. CITALOPRAM HYDROBROMIDE [Concomitant]
     Indication: AFFECTIVE DISORDER
     Dosage: 40 MG, ONCE DAILY
     Route: 048
  4. CLOZARIL [Suspect]
     Dosage: 62.5 MG, DAILY
     Route: 048
  5. TRAZODONE HCL [Concomitant]
     Indication: AFFECTIVE DISORDER
     Dosage: 50 MG, DAILY AT BEDTIME
     Route: 048
  6. CLOZARIL [Suspect]
     Indication: PSYCHOTIC DISORDER
     Dosage: 75 MG, AT BEDTIME
  7. LITHIUM CARBONATE [Concomitant]
     Indication: AFFECTIVE DISORDER
     Dosage: 300 MG, DAILY AT BEDTIME
     Route: 048
  8. ZIPRASIDONE HYDROCHLORIDE [Suspect]
     Indication: SCHIZOAFFECTIVE DISORDER
     Dosage: 40 MG, BID X 2 DAYS
     Route: 048
     Dates: start: 20111020

REACTIONS (6)
  - WEIGHT INCREASED [None]
  - GLUCOSE TOLERANCE IMPAIRED [None]
  - TACHYPHRENIA [None]
  - PSYCHOTIC DISORDER [None]
  - ANXIETY [None]
  - PARANOIA [None]
